APPROVED DRUG PRODUCT: ROXICODONE
Active Ingredient: OXYCODONE HYDROCHLORIDE
Strength: 5MG
Dosage Form/Route: TABLET;ORAL
Application: N021011 | Product #003 | TE Code: AB
Applicant: SPECGX LLC
Approved: May 15, 2009 | RLD: Yes | RS: No | Type: RX